FAERS Safety Report 7478321-8 (Version None)
Quarter: 2011Q2

REPORT INFORMATION
  Report Type: 
  Country: None (occurrence: None)
  Receive Date: 20110513
  Receipt Date: 20110505
  Transmission Date: 20111010
  Serious: Yes (Other)
  Sender: FDA-Public Use
  Company Number: PHHY2011US39324

PATIENT
  Age: 35 Year
  Sex: Male

DRUGS (3)
  1. IMATINIB MESYLATE [Suspect]
     Indication: ACUTE LYMPHOCYTIC LEUKAEMIA
     Dosage: 400 MG, DAILY
  2. CHEMOTHERAPEUTICS NOS [Concomitant]
     Indication: ACUTE LYMPHOCYTIC LEUKAEMIA
  3. TASIGNA [Concomitant]

REACTIONS (4)
  - SUBDURAL HAEMATOMA [None]
  - HEADACHE [None]
  - THROMBOCYTOPENIA [None]
  - LEUKAEMIA RECURRENT [None]
